FAERS Safety Report 8050289-5 (Version None)
Quarter: 2012Q1

REPORT INFORMATION
  Report Type: 
  Country: None (occurrence: None)
  Receive Date: 20120111
  Receipt Date: 20100923
  Transmission Date: 20120608
  Serious: No
  Sender: FDA-Public Use
  Company Number: 2010-05424

PATIENT
  Age: 44 Year
  Sex: Female

DRUGS (4)
  1. NEXIUM [Concomitant]
  2. TUBERSOL [Suspect]
     Indication: TUBERCULIN TEST
     Dosage: I.D.
     Route: 023
     Dates: start: 20100921, end: 20100921
  3. BP-AVAPRO [Concomitant]
  4. PREMARIN [Concomitant]

REACTIONS (4)
  - VOMITING [None]
  - NAUSEA [None]
  - INJECTION SITE ERYTHEMA [None]
  - INJECTION SITE INDURATION [None]
